FAERS Safety Report 9659138 (Version 1)
Quarter: 2013Q4

REPORT INFORMATION
  Report Type: Report from Study
  Country: ZA (occurrence: ZA)
  Receive Date: 20131031
  Receipt Date: 20131031
  Transmission Date: 20140711
  Serious: Yes (Hospitalization)
  Sender: FDA-Public Use
  Company Number: ZA-ROCHE-1297085

PATIENT
  Age: 63 Year
  Sex: Female

DRUGS (6)
  1. MIRCERA [Suspect]
     Indication: NEPHROGENIC ANAEMIA
     Route: 058
     Dates: start: 201101
  2. MIRCERA [Suspect]
     Route: 058
     Dates: start: 201102
  3. MIRCERA [Suspect]
     Route: 058
     Dates: start: 201108
  4. MIRCERA [Suspect]
     Route: 058
     Dates: start: 201212
  5. MIRCERA [Suspect]
     Route: 058
     Dates: start: 201303
  6. MIRCERA [Suspect]
     Route: 058
     Dates: start: 201307

REACTIONS (1)
  - Pyrexia [Unknown]
